FAERS Safety Report 4717664-5 (Version None)
Quarter: 2005Q3

REPORT INFORMATION
  Report Type: 
  Country: None (occurrence: None)
  Receive Date: 20050713
  Receipt Date: 20050523
  Transmission Date: 20060218
  Serious: Yes (Other)
  Sender: FDA-Public Use
  Company Number: 379445

PATIENT
  Sex: Male

DRUGS (1)
  1. FUZEON [Suspect]
     Indication: HIV INFECTION
     Dosage: 90 MG 2 PER DAY
     Dates: start: 20040201

REACTIONS (7)
  - ANOREXIA [None]
  - BALANCE DISORDER [None]
  - DEHYDRATION [None]
  - INJECTION SITE REACTION [None]
  - MEMORY IMPAIRMENT [None]
  - MUSCLE ATROPHY [None]
  - VIRAL LOAD INCREASED [None]
